FAERS Safety Report 14223336 (Version 2)
Quarter: 2017Q4

REPORT INFORMATION
  Report Type: Spontaneous
  Country: PT (occurrence: PT)
  Receive Date: 20171124
  Receipt Date: 20171207
  Transmission Date: 20180321
  Serious: Yes (Hospitalization)
  Sender: FDA-Public Use
  Company Number: PT-ASTRAZENECA-2017SF18296

PATIENT
  Age: 71 Year
  Sex: Female
  Weight: 78 kg

DRUGS (12)
  1. MIRTAZAPINE. [Concomitant]
     Active Substance: MIRTAZAPINE
  2. JANUVIA [Concomitant]
     Active Substance: SITAGLIPTIN PHOSPHATE
  3. METFORMIN [Concomitant]
     Active Substance: METFORMIN HYDROCHLORIDE
  4. AMLODIPINE [Concomitant]
     Active Substance: AMLODIPINE BESYLATE
  5. CISPLATIN. [Concomitant]
     Active Substance: CISPLATIN
     Dates: start: 20160310
  6. VINORELBINE [Concomitant]
     Active Substance: VINORELBINE\VINORELBINE TARTRATE
     Dates: start: 20160310
  7. OMEPRAZOLE. [Concomitant]
     Active Substance: OMEPRAZOLE
  8. LOSARTAN AND HYDROCHLOROTHIAZIDE [Concomitant]
     Active Substance: HYDROCHLOROTHIAZIDE\LOSARTAN POTASSIUM
     Dosage: 100 / 12.5 DAILY
  9. ROSUVASTATIN. [Concomitant]
     Active Substance: ROSUVASTATIN
  10. GLICLAZIDE [Concomitant]
     Active Substance: GLICLAZIDE
  11. IRESSA [Suspect]
     Active Substance: GEFITINIB
     Indication: NON-SMALL CELL LUNG CANCER
     Dosage: UNKNOWN
     Route: 048
     Dates: start: 20170808, end: 20170825
  12. NIVOLUMAB [Concomitant]
     Active Substance: NIVOLUMAB

REACTIONS (7)
  - Electrolyte imbalance [Unknown]
  - Renal injury [Unknown]
  - Toxicity to various agents [Unknown]
  - Gastrointestinal toxicity [Unknown]
  - Diarrhoea [Unknown]
  - Stomatitis [Unknown]
  - Dermatitis acneiform [Unknown]
